FAERS Safety Report 6811853-1 (Version None)
Quarter: 2010Q2

REPORT INFORMATION
  Report Type: 
  Country: None (occurrence: None)
  Receive Date: 20100628
  Receipt Date: 20100608
  Transmission Date: 20101027
  Serious: Yes (Other)
  Sender: FDA-Public Use
  Company Number: 2010-00385

PATIENT
  Age: 66 Year
  Sex: Male

DRUGS (8)
  1. SIMVASTATIN [Suspect]
     Indication: HYPERLIPIDAEMIA
     Dosage: 40 MG
     Dates: start: 20100220, end: 20100318
  2. ASPIRIN [Concomitant]
  3. BISOPROLOL [Concomitant]
  4. CLOPIDOGREL [Concomitant]
  5. PREDNISOLONE [Concomitant]
  6. RAMIPRIL [Concomitant]
  7. FLUTICASONE PROPIONATE MICRONISED+SALMETEROL XINAFOATE MICRONISED (SER [Concomitant]
  8. TIOTROPIUM BROMIDE [Concomitant]

REACTIONS (6)
  - FATIGUE [None]
  - LIVER FUNCTION TEST ABNORMAL [None]
  - MUSCULAR WEAKNESS [None]
  - MYALGIA [None]
  - MYOSITIS [None]
  - RENAL FAILURE ACUTE [None]
